FAERS Safety Report 21255671 (Version 2)
Quarter: 2022Q3

REPORT INFORMATION
  Report Type: Report from Study
  Country: NO (occurrence: NO)
  Receive Date: 20220825
  Receipt Date: 20220828
  Transmission Date: 20221027
  Serious: Yes (Hospitalization, Disabling)
  Sender: FDA-Public Use
  Company Number: NO-NOVARTISPH-NVSC2022NO190060

PATIENT
  Sex: Female

DRUGS (13)
  1. DABRAFENIB [Suspect]
     Active Substance: DABRAFENIB
     Indication: Neoplasm malignant
     Dosage: 300 MG, QD
     Route: 048
     Dates: start: 20220311, end: 20220406
  2. DABRAFENIB [Suspect]
     Active Substance: DABRAFENIB
     Dosage: 150 MG, QD
     Route: 048
     Dates: start: 20220408, end: 20220509
  3. DABRAFENIB [Suspect]
     Active Substance: DABRAFENIB
     Dosage: 100 MG, QD
     Route: 048
     Dates: start: 20220510, end: 20220603
  4. DABRAFENIB [Suspect]
     Active Substance: DABRAFENIB
     Dosage: 100 MG, QD
     Route: 048
     Dates: start: 20220603, end: 20220627
  5. MORPHINE [Concomitant]
     Active Substance: MORPHINE
     Indication: Pain
     Dosage: 10 MG (IF NEEDED) (1-2 DAILY)
     Route: 065
     Dates: start: 20220309
  6. MORPHINE [Concomitant]
     Active Substance: MORPHINE
     Indication: Pain
     Dosage: 20 MG, (20 MG X 2) (1-2 DAILY)
     Route: 065
     Dates: start: 20220309, end: 20220712
  7. MORPHINE [Concomitant]
     Active Substance: MORPHINE
     Dosage: 25 MG
     Route: 065
     Dates: start: 20220712
  8. FRAGMIN [Concomitant]
     Active Substance: DALTEPARIN SODIUM
     Indication: Prophylaxis
     Dosage: 5000 OTHER
     Route: 065
     Dates: start: 20211206
  9. CREON [Concomitant]
     Active Substance: PANCRELIPASE AMYLASE\PANCRELIPASE LIPASE\PANCRELIPASE PROTEASE
     Indication: Prophylaxis
     Dosage: 50000 OTHER
     Route: 065
     Dates: start: 20210503
  10. LYRICA [Concomitant]
     Active Substance: PREGABALIN
     Indication: Pain
     Dosage: 25 MG
     Route: 065
     Dates: start: 20220215, end: 20220707
  11. LYRICA [Concomitant]
     Active Substance: PREGABALIN
     Dosage: 25 MG
     Route: 065
     Dates: start: 20220707, end: 20220715
  12. LYRICA [Concomitant]
     Active Substance: PREGABALIN
     Dosage: 25 MG
     Route: 065
     Dates: start: 20220721
  13. MYCOSTATIN [Concomitant]
     Active Substance: NYSTATIN
     Indication: Antifungal prophylaxis
     Dosage: 1 ML
     Route: 065
     Dates: start: 2022, end: 20220312

REACTIONS (1)
  - Influenza like illness [Recovered/Resolved]

NARRATIVE: CASE EVENT DATE: 20220720
